FAERS Safety Report 6309011-2 (Version None)
Quarter: 2009Q3

REPORT INFORMATION
  Report Type: 
  Country: None (occurrence: None)
  Receive Date: 20090813
  Receipt Date: 20090805
  Transmission Date: 20100115
  Serious: Yes (Hospitalization)
  Sender: FDA-Public Use
  Company Number: JP-ALLERGAN-0910548US

PATIENT
  Age: 31 Year
  Sex: Male
  Weight: 66 kg

DRUGS (6)
  1. ALESION TABLET [Suspect]
     Indication: PRURITUS
     Dosage: 10 MG, UNK
     Route: 048
     Dates: start: 20090624, end: 20090701
  2. POLARAMINE [Suspect]
     Indication: PRURITUS
     Dosage: 2 MG, UNK
     Route: 048
     Dates: start: 20090623, end: 20090708
  3. MYSLEE [Concomitant]
     Indication: INSOMNIA
     Dosage: 5 MG, UNK
     Route: 048
     Dates: start: 20090615, end: 20090708
  4. MYSLEE [Concomitant]
     Dates: start: 20090715
  5. GOODMIN [Concomitant]
     Indication: INSOMNIA
     Dosage: 0.25 MG, UNK
     Route: 048
     Dates: start: 20090608, end: 20090708
  6. GOODMIN [Concomitant]
     Route: 048
     Dates: start: 20090715

REACTIONS (2)
  - HAEMATURIA [None]
  - RASH [None]
